FAERS Safety Report 8078120-2 (Version None)
Quarter: 2012Q1

REPORT INFORMATION
  Report Type: 
  Country: None (occurrence: None)
  Receive Date: 20120127
  Receipt Date: 20110117
  Transmission Date: 20120608
  Serious: No
  Sender: FDA-Public Use
  Company Number: US-ABBOTT-10P-163-0684290-00

PATIENT
  Age: 57 Year
  Sex: Female

DRUGS (11)
  1. LORAZEPAM [Concomitant]
     Indication: ANXIETY
  2. ACYCLOVIR [Concomitant]
     Indication: ORAL HERPES
     Route: 048
  3. TOPAMAX [Concomitant]
     Indication: PRODUCT USED FOR UNKNOWN INDICATION
     Dosage: OINTMENT
     Route: 061
  4. TEMAZEPAM [Concomitant]
     Indication: SLEEP DISORDER THERAPY
     Dosage: AT NIGHT
     Route: 048
  5. TYLENOL W/ CODEINE NO. 3 [Concomitant]
     Indication: PAIN
     Dosage: 30MG
  6. TRAMADOL HCL [Concomitant]
     Indication: ANTIINFLAMMATORY THERAPY
     Route: 048
  7. LORAZEPAM [Concomitant]
  8. VERAPAMIL [Concomitant]
     Indication: CARDIAC VALVE DISEASE
     Route: 048
  9. DARVOCET [Concomitant]
     Indication: PAIN
     Route: 048
  10. HUMIRA [Suspect]
     Indication: PSORIATIC ARTHROPATHY
     Dates: start: 20100928, end: 20101201
  11. FLEXERIL [Concomitant]
     Indication: MUSCLE RELAXANT THERAPY
     Route: 048

REACTIONS (1)
  - PSORIASIS [None]
